FAERS Safety Report 6831999-1 (Version None)
Quarter: 2010Q3

REPORT INFORMATION
  Report Type: 
  Country: None (occurrence: None)
  Receive Date: 20100712
  Receipt Date: 20100630
  Transmission Date: 20110219
  Serious: Yes (Hospitalization, Other)
  Sender: FDA-Public Use
  Company Number: US-ELI_LILLY_AND_COMPANY-US201007000966

PATIENT
  Sex: Female

DRUGS (2)
  1. EFFIENT [Suspect]
     Dosage: 10 MG, UNKNOWN
     Route: 048
  2. REOPRO [Concomitant]
     Dosage: 1 D/F, UNKNOWN

REACTIONS (2)
  - CATHETERISATION CARDIAC [None]
  - RETROPERITONEAL HAEMORRHAGE [None]
